FAERS Safety Report 16831971 (Version 1)
Quarter: 2019Q3

REPORT INFORMATION
  Report Type: Spontaneous
  Country: PH (occurrence: PH)
  Receive Date: 20190920
  Receipt Date: 20190920
  Transmission Date: 20191005
  Serious: Yes (Other)
  Sender: FDA-Public Use
  Company Number: PHHY2017PH205454

PATIENT
  Age: 3 Year
  Sex: Male

DRUGS (2)
  1. AUGET [AMOXICILLIN TRIHYDRATE\CLAVULANATE POTASSIUM] [Suspect]
     Active Substance: AMOXICILLIN\CLAVULANATE POTASSIUM
     Indication: OTITIS MEDIA ACUTE
     Dosage: 3 ML, BID
     Route: 048
     Dates: start: 20170116, end: 20170117
  2. CETIRIZINE [Concomitant]
     Active Substance: CETIRIZINE HYDROCHLORIDE
     Indication: OTITIS MEDIA ACUTE
     Dosage: UNK (3-5 ML)
     Route: 048
     Dates: start: 20170116, end: 20170129

REACTIONS (3)
  - Rash [Recovered/Resolved]
  - Drug hypersensitivity [Recovered/Resolved]
  - Pruritus [Recovered/Resolved]

NARRATIVE: CASE EVENT DATE: 20170117
